FAERS Safety Report 5411828-3 (Version None)
Quarter: 2007Q3

REPORT INFORMATION
  Report Type: 
  Country: None (occurrence: None)
  Receive Date: 20070813
  Receipt Date: 20070802
  Transmission Date: 20080115
  Serious: Yes (Hospitalization)
  Sender: FDA-Public Use
  Company Number: CA-JNJFOC-20070800858

PATIENT
  Sex: Female
  Weight: 79.6 kg

DRUGS (1)
  1. REMICADE [Suspect]
     Indication: RHEUMATOID ARTHRITIS
     Dosage: 55 DOSES
     Route: 042

REACTIONS (3)
  - BLOOD POTASSIUM DECREASED [None]
  - CARDIAC DISORDER [None]
  - EMPHYSEMA [None]
